FAERS Safety Report 23694772 (Version 1)
Quarter: 2024Q2

REPORT INFORMATION
  Report Type: Spontaneous
  Country: JP (occurrence: JP)
  Receive Date: 20240402
  Receipt Date: 20240402
  Transmission Date: 20240716
  Serious: No
  Sender: FDA-Public Use
  Company Number: JP-ALKEM LABORATORIES LIMITED-JP-ALKEM-2023-07655

PATIENT
  Age: 82 Year
  Sex: Male

DRUGS (3)
  1. COLCHICINE [Suspect]
     Active Substance: COLCHICINE
     Indication: Behcet^s syndrome
     Dosage: 0.5 MILLIGRAM, QD (DAILY DOSE)
     Route: 065
  2. COLCHICINE [Suspect]
     Active Substance: COLCHICINE
     Indication: Myelodysplastic syndrome
  3. COLCHICINE [Suspect]
     Active Substance: COLCHICINE
     Indication: Brucellosis

REACTIONS (2)
  - Underdose [Unknown]
  - Therapy partial responder [Unknown]
